FAERS Safety Report 14007238 (Version 1)
Quarter: 2017Q3

REPORT INFORMATION
  Report Type: Spontaneous
  Country: US (occurrence: US)
  Receive Date: 20170924
  Receipt Date: 20170924
  Transmission Date: 20171128
  Serious: No
  Sender: FDA-Public Use
  Company Number: None

PATIENT
  Age: 59 Year
  Sex: Female
  Weight: 44.55 kg

DRUGS (5)
  1. ALBUTEROL MDI [Concomitant]
     Active Substance: ALBUTEROL
  2. DOXYCYCLINE HYCLATE. [Suspect]
     Active Substance: DOXYCYCLINE HYCLATE
     Indication: SINUSITIS
     Dosage: ?          QUANTITY:20 TABLET(S);?
     Route: 048
  3. TUMS [Concomitant]
     Active Substance: CALCIUM CARBONATE
  4. RANITIDINE. [Concomitant]
     Active Substance: RANITIDINE
  5. DOXYCYCLINE MONO [Suspect]
     Active Substance: DOXYCYCLINE
     Indication: SINUSITIS
     Dosage: ?          QUANTITY:14 CAPSULE(S);?
     Route: 048
     Dates: start: 20170908, end: 20170914

REACTIONS (2)
  - Product measured potency issue [None]
  - Product formulation issue [None]

NARRATIVE: CASE EVENT DATE: 20170908
